FAERS Safety Report 10185115 (Version 1)
Quarter: 2014Q2

REPORT INFORMATION
  Report Type: Spontaneous
  Country: US (occurrence: None)
  Receive Date: 20140520
  Receipt Date: 20140520
  Transmission Date: 20141212
  Serious: Yes (Life-Threatening, Disabling, Other)
  Sender: FDA-Public Use
  Company Number: None

PATIENT
  Age: 62 Year
  Sex: Male
  Weight: 79.38 kg

DRUGS (1)
  1. CHANTIX [Suspect]
     Indication: SMOKING CESSATION THERAPY
     Dosage: PER PKG 2/DAY?TWICE DAILY ?TAKEN BY MOUTH
     Route: 048
     Dates: start: 20140315, end: 20140401

REACTIONS (13)
  - Lethargy [None]
  - Decreased appetite [None]
  - Nausea [None]
  - Headache [None]
  - Muscle spasms [None]
  - Muscle spasms [None]
  - Myalgia [None]
  - Pain [None]
  - Gait disturbance [None]
  - Suicidal ideation [None]
  - Depression [None]
  - Anxiety [None]
  - Condition aggravated [None]
